FAERS Safety Report 16485796 (Version 2)
Quarter: 2020Q2

REPORT INFORMATION
  Report Type: Spontaneous
  Country: DE (occurrence: DE)
  Receive Date: 20190627
  Receipt Date: 20200627
  Transmission Date: 20200713
  Serious: Yes (Other)
  Sender: FDA-Public Use
  Company Number: DE-ASTRAZENECA-2019SE90017

PATIENT
  Age: 47 Year
  Sex: Female
  Weight: 65 kg

DRUGS (11)
  1. QUETIAPINE. [Suspect]
     Active Substance: QUETIAPINE
     Indication: DEPRESSION
     Dosage: 225 [MG/D (UP TO 150 MG/D, 100-150 RETARDED, 50-75 NON-RETARDED]
     Route: 048
     Dates: start: 20180310, end: 20181211
  2. ASPIRIN. [Concomitant]
     Active Substance: ASPIRIN
     Indication: PROPHYLAXIS
     Route: 048
  3. PREDNISOLON [Concomitant]
     Active Substance: PREDNISOLONE
     Indication: INFERTILITY FEMALE
     Dosage: 15 [MG/D (UP TO 5)]
     Route: 048
     Dates: start: 20180324, end: 20180424
  4. CLEXANE [Concomitant]
     Active Substance: ENOXAPARIN SODIUM
     Indication: PROPHYLAXIS OF ABORTION
     Route: 058
     Dates: start: 20180328, end: 20180421
  5. QUETIAPINE. [Suspect]
     Active Substance: QUETIAPINE
     Indication: DEPRESSION
     Dosage: 225 [MG/D (UP TO 150 MG/D, 100-150 RETARDED, 50-75 NON-RETARDED]
     Route: 048
     Dates: start: 20180310, end: 20181211
  6. VAXIGRIPTETRA [Concomitant]
     Active Substance: INFLUENZA VIRUS VACCINE QUADRIVALENT TYPE A+B
     Indication: IMMUNISATION
     Route: 030
  7. PROLUTON [Concomitant]
     Active Substance: HYDROXYPROGESTERONE CAPROATE
     Indication: PROPHYLAXIS OF ABORTION
     Dosage: 500 MG/D EVERY 3 DAYS
     Route: 030
     Dates: start: 20180328, end: 20180419
  8. L-THYROXIN [Concomitant]
     Active Substance: LEVOTHYROXINE SODIUM
     Indication: HYPOTHYROIDISM
     Dosage: 100 ??G/D (UP TO 50 ??G/D)
     Route: 048
     Dates: start: 20180310, end: 20181023
  9. COLECALCIFEROL [Concomitant]
     Active Substance: CHOLECALCIFEROL
     Indication: VITAMIN D DEFICIENCY
     Dosage: 20000 [I.E./WK ]
     Route: 048
  10. XYLOMETAZOLINE [Concomitant]
     Active Substance: XYLOMETAZOLINE
     Indication: NASAL CONGESTION
     Route: 045
  11. ACTRAPID [Concomitant]
     Active Substance: INSULIN HUMAN
     Indication: GESTATIONAL DIABETES
     Dosage: 100 I.E./ML
     Route: 058

REACTIONS (3)
  - Exposure during pregnancy [Unknown]
  - Polyhydramnios [Recovered/Resolved]
  - Gestational diabetes [Recovered/Resolved]
